FAERS Safety Report 6941330-9 (Version None)
Quarter: 2010Q3

REPORT INFORMATION
  Report Type: 
  Country: None (occurrence: None)
  Receive Date: 20100824
  Receipt Date: 20100824
  Transmission Date: 20110219
  Serious: No
  Sender: FDA-Public Use
  Company Number: None

PATIENT
  Sex: Female
  Weight: 84.1 kg

DRUGS (1)
  1. PROVIGIL [Suspect]
     Indication: SOMNOLENCE
     Dosage: 200MG ONCE PER DAY
     Dates: start: 20030101, end: 20100801

REACTIONS (2)
  - CHILLS [None]
  - HYPERHIDROSIS [None]
